FAERS Safety Report 25743409 (Version 1)
Quarter: 2025Q3

REPORT INFORMATION
  Report Type: Spontaneous
  Country: CN (occurrence: CN)
  Receive Date: 20250830
  Receipt Date: 20250830
  Transmission Date: 20251021
  Serious: Yes (Death, Other)
  Sender: AMGEN
  Company Number: CN-AMGEN-CHNSP2025168232

PATIENT
  Age: 64 Year
  Sex: Male

DRUGS (2)
  1. XGEVA [Suspect]
     Active Substance: DENOSUMAB
     Indication: Prostate cancer
     Route: 065
     Dates: start: 202304
  2. ENZALUTAMIDE [Concomitant]
     Active Substance: ENZALUTAMIDE
     Indication: Prostate cancer
     Route: 065

REACTIONS (15)
  - Respiratory depression [Fatal]
  - Thrombocytopenia [Unknown]
  - Metastases to lung [Unknown]
  - Dry mouth [Unknown]
  - Resorption bone increased [Unknown]
  - Metastases to central nervous system [Unknown]
  - Metastases to meninges [Unknown]
  - Metastases to bone [Unknown]
  - Leukopenia [Unknown]
  - Myelofibrosis [Unknown]
  - Taste disorder [Unknown]
  - Blood alkaline phosphatase increased [Unknown]
  - General physical health deterioration [Unknown]
  - Fatigue [Unknown]
  - Bone pain [Unknown]
